FAERS Safety Report 10085369 (Version 2)
Quarter: 2014Q2

REPORT INFORMATION
  Report Type: Spontaneous
  Country: US (occurrence: US)
  Receive Date: 20140417
  Receipt Date: 20140428
  Transmission Date: 20141212
  Serious: No
  Sender: FDA-Public Use
  Company Number: US-009507513-1404USA002590

PATIENT
  Age: 81 Year
  Sex: Female
  Weight: 88.44 kg

DRUGS (1)
  1. CLARITIN [Suspect]
     Indication: PRURITUS
     Dosage: 10 MG, ONCE
     Route: 048
     Dates: start: 20140331

REACTIONS (1)
  - Headache [Unknown]
